FAERS Safety Report 9401609 (Version 1)
Quarter: 2013Q3

REPORT INFORMATION
  Report Type: Report from Study
  Country: AU (occurrence: AU)
  Receive Date: 20130716
  Receipt Date: 20130716
  Transmission Date: 20140515
  Serious: Yes (Hospitalization)
  Sender: FDA-Public Use
  Company Number: AU-BIOGENIDEC-2013BI063502

PATIENT
  Age: 39 Year
  Sex: Female

DRUGS (6)
  1. TYSABRI [Suspect]
     Indication: RELAPSING-REMITTING MULTIPLE SCLEROSIS
     Route: 042
     Dates: start: 20090321
  2. ENDEP [Concomitant]
     Indication: DEPRESSION
     Route: 048
     Dates: start: 20080403
  3. EDDONE [Concomitant]
     Indication: PAIN
     Dates: start: 20130322
  4. DOCUSATE SODIUM\SENNOSIDES [Concomitant]
     Indication: GASTROINTESTINAL DISORDER
     Dates: start: 20130324
  5. OXYCONTIN [Concomitant]
     Indication: PAIN
     Dates: start: 20130322
  6. KETOLORAC [Concomitant]
     Indication: VITAMIN K
     Dates: start: 20130322

REACTIONS (1)
  - Cellulitis [Recovered/Resolved]
